FAERS Safety Report 9038111 (Version 1)
Quarter: 2013Q1

REPORT INFORMATION
  Report Type: Spontaneous
  Country: AU (occurrence: AU)
  Receive Date: 20130129
  Receipt Date: 20130129
  Transmission Date: 20140127
  Serious: Yes (Other)
  Sender: FDA-Public Use
  Company Number: AU-PFIZER INC-2013026434

PATIENT
  Sex: Male

DRUGS (2)
  1. XALACOM [Suspect]
     Dosage: UNK
  2. XALATAN [Suspect]
     Dosage: UNK

REACTIONS (4)
  - Drug dispensing error [Unknown]
  - Wrong drug administered [Unknown]
  - Intraocular pressure increased [Unknown]
  - Eye disorder [Unknown]
